FAERS Safety Report 7858711-1 (Version None)
Quarter: 2011Q4

REPORT INFORMATION
  Report Type: 
  Country: None (occurrence: None)
  Receive Date: 20111027
  Receipt Date: 20111017
  Transmission Date: 20120403
  Serious: Yes (Life-Threatening, Other)
  Sender: FDA-Public Use
  Company Number: US-JNJFOC-20110911807

PATIENT
  Sex: Male
  Weight: 54.2 kg

DRUGS (7)
  1. CLARITIN [Suspect]
     Indication: PREMEDICATION
     Route: 065
  2. TYLENOL-500 [Suspect]
     Indication: PREMEDICATION
     Route: 065
  3. PREDNISONE [Suspect]
     Indication: PREMEDICATION
     Route: 065
  4. BENADRYL [Concomitant]
     Indication: PREMEDICATION
     Route: 065
  5. REMICADE [Suspect]
     Indication: CROHN'S DISEASE
     Route: 042
     Dates: start: 20110927, end: 20110927
  6. REMICADE [Suspect]
     Route: 042
     Dates: start: 20100101
  7. TYLENOL-500 [Suspect]
     Route: 065

REACTIONS (2)
  - ANAPHYLACTIC REACTION [None]
  - INFUSION RELATED REACTION [None]
